FAERS Safety Report 13570901 (Version 1)
Quarter: 2017Q2

REPORT INFORMATION
  Report Type: Spontaneous
  Country: US (occurrence: US)
  Receive Date: 20170523
  Receipt Date: 20170523
  Transmission Date: 20170830
  Serious: Yes (Other)
  Sender: FDA-Public Use
  Company Number: PHEH2017US014805

PATIENT
  Age: 60 Year
  Sex: Female
  Weight: 61.23 kg

DRUGS (4)
  1. FEMARA [Suspect]
     Active Substance: LETROZOLE
     Indication: BREAST CANCER METASTATIC
     Route: 065
  2. FASLODEX [Concomitant]
     Active Substance: FULVESTRANT
     Indication: NEOPLASM MALIGNANT
     Dosage: 2 DF, QMO
     Route: 065
     Dates: start: 2014, end: 201508
  3. AROMASIN [Concomitant]
     Active Substance: EXEMESTANE
     Indication: PRODUCT USED FOR UNKNOWN INDICATION
     Dosage: UNK
     Route: 065
     Dates: start: 201609
  4. IBRANCE [Suspect]
     Active Substance: PALBOCICLIB
     Indication: BREAST CANCER METASTATIC
     Dosage: UNK
     Route: 065
     Dates: start: 2015, end: 201602

REACTIONS (8)
  - Body height decreased [Unknown]
  - Depression [Unknown]
  - White blood cell count decreased [Unknown]
  - Asthenia [Unknown]
  - Malignant neoplasm progression [Unknown]
  - Cognitive disorder [Unknown]
  - Breast cancer metastatic [Unknown]
  - Drug ineffective [Unknown]

NARRATIVE: CASE EVENT DATE: 201512
